FAERS Safety Report 8501252-9 (Version None)
Quarter: 2012Q3

REPORT INFORMATION
  Report Type: 
  Country: None (occurrence: None)
  Receive Date: 20120710
  Receipt Date: 20120703
  Transmission Date: 20120928
  Serious: Yes (Other)
  Sender: FDA-Public Use
  Company Number: US-PURDUE-USA-2012-0088279

PATIENT
  Sex: Female
  Weight: 48.98 kg

DRUGS (4)
  1. LORAZEPAM [Concomitant]
     Indication: ANXIETY
     Dosage: 0.5 MG, BID
     Dates: start: 20100101
  2. HYDROCODONE BITARTRATE AND ACETAMINOPHEN [Concomitant]
     Indication: BACK PAIN
     Dosage: 10MG / 325 MG
     Dates: start: 20111019, end: 20120519
  3. OXYCONTIN [Suspect]
     Indication: BACK PAIN
     Dosage: 30 MG, UNK
  4. OXYCONTIN [Suspect]
     Dosage: 40 MG, UNK
     Dates: start: 20120519, end: 20120525

REACTIONS (4)
  - MUSCULAR WEAKNESS [None]
  - DRUG EFFECT INCREASED [None]
  - SOMNOLENCE [None]
  - OEDEMA PERIPHERAL [None]
